FAERS Safety Report 8833877 (Version 1)
Quarter: 2012Q4

REPORT INFORMATION
  Report Type: 
  Country: GB (occurrence: GB)
  Receive Date: 20121011
  Receipt Date: 20121011
  Transmission Date: 20130627
  Serious: Yes (Other)
  Sender: FDA-Public Use
  Company Number: GB-SP-2012-09377

PATIENT
  Age: 79 Year
  Sex: Male

DRUGS (1)
  1. BCG LIVE INTRAVESICAL NOS [Suspect]
     Indication: BLADDER CANCER
     Dosage: Not reported
     Route: 043

REACTIONS (11)
  - Interstitial lung disease [Unknown]
  - Urosepsis [Unknown]
  - Lung infiltration [Unknown]
  - Dyspnoea [Unknown]
  - Pyrexia [Unknown]
  - Chills [Unknown]
  - Malaise [Unknown]
  - Pulmonary mass [None]
  - General physical health deterioration [None]
  - Disseminated tuberculosis [None]
  - Hypersensitivity [None]
